FAERS Safety Report 18849301 (Version 2)
Quarter: 2021Q1

REPORT INFORMATION
  Report Type: Report from Study
  Country: US (occurrence: US)
  Receive Date: 20210205
  Receipt Date: 20210308
  Transmission Date: 20210419
  Serious: No
  Sender: FDA-Public Use
  Company Number: NVSC2021US020608

PATIENT
  Sex: Female

DRUGS (1)
  1. PIQRAY [Suspect]
     Active Substance: ALPELISIB
     Indication: PRODUCT USED FOR UNKNOWN INDICATION
     Dosage: 300 MG, QD
     Route: 048
     Dates: start: 20210122

REACTIONS (9)
  - Musculoskeletal chest pain [Recovered/Resolved]
  - Pain [Not Recovered/Not Resolved]
  - Arthralgia [Unknown]
  - Weight decreased [Recovering/Resolving]
  - Vomiting [Recovered/Resolved]
  - Hypophagia [Recovering/Resolving]
  - Nausea [Recovered/Resolved]
  - Asthenia [Recovering/Resolving]
  - Pain in extremity [Unknown]
